FAERS Safety Report 10083776 (Version 2)
Quarter: 2014Q2

REPORT INFORMATION
  Report Type: Spontaneous
  Country: US (occurrence: US)
  Receive Date: 20140417
  Receipt Date: 20140417
  Transmission Date: 20141212
  Serious: No
  Sender: FDA-Public Use
  Company Number: US-009507513-1402USA008086

PATIENT
  Age: 79 Year
  Sex: Male
  Weight: 90.7 kg

DRUGS (9)
  1. OXYTROL FOR WOMEN [Suspect]
     Indication: URINARY INCONTINENCE
     Dosage: 1 DF, Q4D
     Route: 062
     Dates: start: 20140205, end: 20140216
  2. METFORMIN [Concomitant]
     Indication: PRODUCT USED FOR UNKNOWN INDICATION
     Dosage: 500 MG, UNKNOWN
  3. TOPROL XL TABLETS [Concomitant]
     Indication: HEART RATE
     Dosage: 200 MG, UNKNOWN
  4. XARELTO [Concomitant]
     Indication: ATRIAL FIBRILLATION
     Dosage: 20 MG, UNKNOWN
  5. LOTREL [Concomitant]
     Indication: HYPERTENSION
     Dosage: UNK, UNKNOWN
  6. LIPITOR [Concomitant]
     Indication: BLOOD CHOLESTEROL
     Dosage: 20 MG, UNKNOWN
  7. ARICEPT [Concomitant]
     Indication: DEMENTIA
     Dosage: 5 MG, UNKNOWN
  8. CYANOCOBALAMIN [Concomitant]
     Indication: PRODUCT USED FOR UNKNOWN INDICATION
     Dosage: 1000 MG, UNKNOWN
  9. DITROPAN [Concomitant]
     Indication: URINARY INCONTINENCE
     Dosage: 5 MG, UNKNOWN

REACTIONS (4)
  - Pain [Recovered/Resolved]
  - Skin irritation [Unknown]
  - Erythema [Unknown]
  - Off label use [Unknown]
